FAERS Safety Report 8728250 (Version 2)
Quarter: 2013Q4

REPORT INFORMATION
  Report Type: Spontaneous
  Country: US (occurrence: US)
  Receive Date: 20120817
  Receipt Date: 20131129
  Transmission Date: 20140711
  Serious: No
  Sender: FDA-Public Use
  Company Number: US-PFIZER INC-2012159658

PATIENT
  Age: 58 Year
  Sex: Male

DRUGS (2)
  1. XALKORI [Suspect]
     Indication: LUNG NEOPLASM MALIGNANT
     Dosage: 250 MG, 2X/DAY (TAKE 1 CAPSULE TWICE A DAY BY MOUTH)
     Route: 048
     Dates: start: 20120126
  2. XALKORI [Suspect]
     Dosage: UNK,

REACTIONS (3)
  - Disease progression [Unknown]
  - Lung neoplasm malignant [Unknown]
  - Muscle spasms [Unknown]
